FAERS Safety Report 20532076 (Version 3)
Quarter: 2023Q1

REPORT INFORMATION
  Report Type: Report from Study
  Country: FR (occurrence: FR)
  Receive Date: 20220301
  Receipt Date: 20230321
  Transmission Date: 20230417
  Serious: Yes (Hospitalization)
  Sender: FDA-Public Use
  Company Number: FR-BAXTER-2022BAX000867

PATIENT
  Age: 2 Year
  Sex: Female
  Weight: 13 kg

DRUGS (19)
  1. TOPOTECAN [Suspect]
     Active Substance: TOPOTECAN HYDROCHLORIDE
     Indication: Recurrent cancer
     Dosage: 0.75MILLIGRAM/SQ. METER,GIVEN FOR 5DAYS EVERY 21D
     Route: 042
     Dates: start: 20210618, end: 20210716
  2. TOPOTECAN [Suspect]
     Active Substance: TOPOTECAN HYDROCHLORIDE
     Indication: Refractory cancer
     Dosage: 0.55 MILLIGRAM/SQ. METER (GIVEN FOR 5DAYS EVERY 21D)
     Route: 042
     Dates: start: 20210618
  3. TOPOTECAN [Suspect]
     Active Substance: TOPOTECAN HYDROCHLORIDE
     Indication: Angiocentric lymphoma refractory
     Dosage: 0.55 MG/SQ. METER (GIVEN FOR 5DAYS EVERY 21D)
     Route: 042
     Dates: start: 20210802, end: 20210904
  4. CYCLOPHOSPHAMIDE [Suspect]
     Active Substance: CYCLOPHOSPHAMIDE
     Indication: Angiocentric lymphoma refractory
     Dosage: 250 MILLIGRAM/SQ. METER, GIVEN FOR 5DAYS EVERY 21 D
     Route: 042
     Dates: start: 20210618, end: 20210716
  5. CYCLOPHOSPHAMIDE [Suspect]
     Active Substance: CYCLOPHOSPHAMIDE
     Dosage: 183.7MILLIGRAM/SQ. METER, GIVEN FOR 5DAYS EVERY 21
     Route: 042
     Dates: start: 20210802, end: 20210904
  6. CYCLOPHOSPHAMIDE [Suspect]
     Active Substance: CYCLOPHOSPHAMIDE
     Indication: Neuroblastoma
     Dosage: UNK
     Route: 065
     Dates: start: 20210421, end: 20210515
  7. DOXORUBICIN HYDROCHLORIDE [Suspect]
     Active Substance: DOXORUBICIN HYDROCHLORIDE
     Indication: Neuroblastoma
     Dosage: UNK
     Route: 065
     Dates: start: 20210421, end: 20210515
  8. ETOPOSIDE [Suspect]
     Active Substance: ETOPOSIDE
     Indication: Neuroblastoma
     Dosage: UNK
     Route: 065
     Dates: start: 20210304, end: 20210401
  9. VENETOCLAX [Suspect]
     Active Substance: VENETOCLAX
     Indication: Recurrent cancer
     Dosage: 120 MILLIGRAM, QD
     Dates: start: 20210616, end: 20210616
  10. VENETOCLAX [Suspect]
     Active Substance: VENETOCLAX
     Indication: Refractory cancer
     Dosage: 250 MILLIGRAM, QD
     Dates: start: 20210617, end: 20210906
  11. VENETOCLAX [Suspect]
     Active Substance: VENETOCLAX
     Indication: Angiocentric lymphoma refractory
  12. VOGALENE [Concomitant]
     Active Substance: METOPIMAZINE
     Indication: Vomiting
     Dosage: UNK, QD
     Route: 048
     Dates: start: 20210803
  13. ONDANSETRON [Concomitant]
     Active Substance: ONDANSETRON
     Indication: Vomiting
     Dosage: 6 MILLIGRAM, QD
     Route: 065
     Dates: start: 20210621
  14. ONDANSETRON [Concomitant]
     Active Substance: ONDANSETRON
     Indication: Prophylaxis of nausea and vomiting
     Dosage: 4 MILLIGRAM, QD
     Route: 042
     Dates: start: 20210616, end: 20210621
  15. NUTRINI [Concomitant]
     Indication: Enteral nutrition
     Dosage: 30 MILLILITER (30 ML/HOUR (DURING THE NIGHT))
     Dates: start: 20210718, end: 20210907
  16. NUTRINI [Concomitant]
     Dosage: 400 MILLILITER, QD (200 ML, 2 IN 1 D)
     Dates: start: 20210718
  17. NUTRINI [Concomitant]
     Indication: Enteral nutrition
     Dosage: 240 MILLILITER, QD
     Route: 042
     Dates: start: 20210619, end: 20210717
  18. Solupred [Concomitant]
     Indication: Nausea
     Dosage: 20 MILLIGRAM, PRN (AS REQUIRED)
     Route: 048
     Dates: start: 20210621
  19. METHYLPREDNISOLONE [Concomitant]
     Active Substance: METHYLPREDNISOLONE
     Indication: Nausea
     Dosage: 10 MILLIGRAM, PRN (1 AS REQUIRED)
     Dates: start: 20210819

REACTIONS (5)
  - Dehydration [Recovered/Resolved]
  - Clostridium colitis [Recovered/Resolved]
  - Diarrhoea [Recovered/Resolved]
  - Vomiting [Unknown]
  - Product use issue [Unknown]

NARRATIVE: CASE EVENT DATE: 20210902
